FAERS Safety Report 9631406 (Version 2)
Quarter: 2013Q4

REPORT INFORMATION
  Report Type: Spontaneous
  Country: MY (occurrence: MY)
  Receive Date: 20131018
  Receipt Date: 20131113
  Transmission Date: 20140711
  Serious: Yes (Other)
  Sender: FDA-Public Use
  Company Number: MY-PFIZER INC-2013298225

PATIENT
  Sex: Female

DRUGS (2)
  1. LIPITOR [Suspect]
     Dosage: UNK
  2. CALCIUM [Concomitant]

REACTIONS (7)
  - Blood pressure fluctuation [Unknown]
  - Headache [Unknown]
  - Weight increased [Unknown]
  - Uterine leiomyoma [Unknown]
  - Feeling abnormal [Unknown]
  - Abdominal rigidity [Unknown]
  - Bronchitis [Unknown]
